FAERS Safety Report 15385364 (Version 1)
Quarter: 2018Q3

REPORT INFORMATION
  Report Type: Spontaneous
  Country: US (occurrence: US)
  Receive Date: 20180907
  Receipt Date: 20180907
  Transmission Date: 20181010
  Serious: No
  Sender: FDA-Public Use
  Company Number: None

PATIENT
  Age: 19 Year
  Sex: Male
  Weight: 78.75 kg

DRUGS (6)
  1. VITAMIN C [Concomitant]
     Active Substance: ASCORBIC ACID
  2. MAGNESIUM [Concomitant]
     Active Substance: MAGNESIUM
  3. MULTIVITAMIN [Concomitant]
     Active Substance: VITAMINS
  4. RISPERIDONE 1MG TABLET RITEAID [Suspect]
     Active Substance: RISPERIDONE
     Indication: AUTISM SPECTRUM DISORDER
     Dosage: ?          QUANTITY:1.5 TABLET(S);?
     Route: 048
     Dates: start: 20180227, end: 20180306
  5. VITAMIN D [Concomitant]
     Active Substance: CHOLECALCIFEROL
  6. FISH OIL [Concomitant]
     Active Substance: FISH OIL

REACTIONS (3)
  - Depression [None]
  - Product substitution issue [None]
  - Intentional self-injury [None]

NARRATIVE: CASE EVENT DATE: 20180306
